FAERS Safety Report 21076443 (Version 2)
Quarter: 2022Q3

REPORT INFORMATION
  Report Type: Report from Study
  Country: FR (occurrence: FR)
  Receive Date: 20220713
  Receipt Date: 20220824
  Transmission Date: 20221026
  Serious: Yes (Other)
  Sender: FDA-Public Use
  Company Number: FR-KYOWAKIRIN-2022BKK010534

PATIENT

DRUGS (2)
  1. BUROSUMAB [Suspect]
     Active Substance: BUROSUMAB
     Indication: Hereditary hypophosphataemic rickets
     Dosage: 40 MG
     Route: 058
     Dates: start: 20200110
  2. BUROSUMAB [Suspect]
     Active Substance: BUROSUMAB
     Dosage: 40 MG
     Route: 058
     Dates: start: 20220620

REACTIONS (3)
  - Multisystem inflammatory syndrome in children [Unknown]
  - Myalgia [Not Recovered/Not Resolved]
  - Pyrexia [Not Recovered/Not Resolved]

NARRATIVE: CASE EVENT DATE: 20220701
